FAERS Safety Report 7675724-3 (Version None)
Quarter: 2011Q3

REPORT INFORMATION
  Report Type: 
  Country: None (occurrence: None)
  Receive Date: 20110810
  Receipt Date: 20110727
  Transmission Date: 20111222
  Serious: Yes (Hospitalization, Disabling)
  Sender: FDA-Public Use
  Company Number: AU-CELGENEUS-008-C5013-11072928

PATIENT
  Sex: Male
  Weight: 72.2 kg

DRUGS (13)
  1. SIGMACORT [Concomitant]
     Indication: RASH
     Route: 061
     Dates: start: 20110715
  2. ACETAMINOPHEN W/ CODEINE [Concomitant]
     Indication: PAIN
     Route: 048
     Dates: start: 20110727, end: 20110801
  3. LENALIDOMIDE [Suspect]
     Dosage: 2.5 MILLIGRAM
     Dates: start: 20110627, end: 20110714
  4. DIPROSONE [Concomitant]
     Indication: RASH
     Route: 061
  5. COLOXYL + SENNA [Concomitant]
     Indication: CONSTIPATION
     Route: 048
     Dates: start: 20110727, end: 20110727
  6. VITAMIN B-12 [Concomitant]
     Indication: NUTRITIONAL SUPPORT
     Dosage: 1000 MICROGRAM
     Route: 058
     Dates: start: 20110727, end: 20110801
  7. MULTI-VITAMINS [Concomitant]
     Indication: NUTRITIONAL SUPPORT
     Dosage: 1 DOSAGE FORMS
     Route: 048
     Dates: start: 20110726
  8. THIAMINE HCL [Concomitant]
     Indication: NUTRITIONAL SUPPORT
     Dosage: 100 MILLIGRAM
     Route: 048
     Dates: start: 20110726
  9. PANTOPRAZOLE [Concomitant]
     Dosage: 40 MILLIGRAM
     Route: 048
     Dates: start: 20110728
  10. LENALIDOMIDE [Suspect]
     Dosage: 2.5 MILLIGRAM
     Route: 048
     Dates: start: 20110509
  11. AVENO [Concomitant]
     Indication: RASH
     Route: 061
     Dates: start: 20110704
  12. MOVIPREP [Concomitant]
     Indication: CONSTIPATION
     Dosage: 1 SACHET
     Route: 048
     Dates: start: 20110729, end: 20110730
  13. OMEPRAZOLE [Concomitant]
     Dosage: 20 MILLIGRAM
     Route: 048
     Dates: start: 20110728, end: 20110728

REACTIONS (1)
  - OPTIC NEUROPATHY [None]
